FAERS Safety Report 5932957-1 (Version None)
Quarter: 2008Q4

REPORT INFORMATION
  Report Type: 
  Country: None (occurrence: None)
  Receive Date: 20081028
  Receipt Date: 20081021
  Transmission Date: 20090506
  Serious: Yes (Death, Hospitalization)
  Sender: FDA-Public Use
  Company Number: JP-GILEAD-2008-0016006

PATIENT
  Sex: Female

DRUGS (1)
  1. AMBRISENTAN [Suspect]
     Indication: PULMONARY HYPERTENSION
     Route: 048
     Dates: start: 20080318, end: 20080808

REACTIONS (6)
  - BACTERIAL INFECTION [None]
  - LEUKOPENIA [None]
  - PLEURAL EFFUSION [None]
  - PNEUMONIA [None]
  - PULMONARY HAEMORRHAGE [None]
  - RIGHT VENTRICULAR FAILURE [None]
